FAERS Safety Report 9110608 (Version 1)
Quarter: 2013Q1

REPORT INFORMATION
  Report Type: Spontaneous
  Country: US (occurrence: US)
  Receive Date: 20130219
  Receipt Date: 20130219
  Transmission Date: 20140127
  Serious: No
  Sender: FDA-Public Use
  Company Number: US-BRISTOL-MYERS SQUIBB COMPANY-16618761

PATIENT
  Age: 76 Year
  Sex: Female
  Weight: 64.4 kg

DRUGS (2)
  1. ORENCIA [Suspect]
     Indication: RHEUMATOID ARTHRITIS
     Dosage: RECENT INFUSION:13DEC2012
     Route: 042
     Dates: start: 20120519
  2. PREDNISONE [Concomitant]

REACTIONS (5)
  - White blood cell count increased [Unknown]
  - Pain [Unknown]
  - Rheumatoid arthritis [Unknown]
  - Rash macular [Unknown]
  - Weight increased [Unknown]
